FAERS Safety Report 16847974 (Version 1)
Quarter: 2019Q3

REPORT INFORMATION
  Report Type: Spontaneous
  Country: CA (occurrence: CA)
  Receive Date: 20190924
  Receipt Date: 20190924
  Transmission Date: 20191005
  Serious: Yes (Other)
  Sender: FDA-Public Use
  Company Number: CA-AUROBINDO-AUR-APL-2019-062568

PATIENT
  Sex: Female

DRUGS (2)
  1. VALSARTAN. [Suspect]
     Active Substance: VALSARTAN
     Indication: BLOOD PRESSURE ABNORMAL
     Dosage: 1.0 DOSAGE FORM, ONCE A DAY
     Route: 065
  2. VALSARTAN. [Suspect]
     Active Substance: VALSARTAN
     Dosage: 2.0 DOSAGE FORM, ONCE A DAY
     Route: 065

REACTIONS (5)
  - Blood pressure increased [Recovered/Resolved]
  - Haematochezia [Recovered/Resolved]
  - Anxiety [Recovered/Resolved]
  - Ovarian cancer [Recovered/Resolved]
  - Nervousness [Recovered/Resolved]
